FAERS Safety Report 7413346-X (Version None)
Quarter: 2011Q2

REPORT INFORMATION
  Report Type: 
  Country: None (occurrence: None)
  Receive Date: 20110413
  Receipt Date: 20101013
  Transmission Date: 20111010
  Serious: No
  Sender: FDA-Public Use
  Company Number: US-ASTRAZENECA-2010SE48529

PATIENT
  Age: 62 Year
  Sex: Female

DRUGS (1)
  1. TENORMIN [Suspect]
     Route: 065
     Dates: start: 19800101

REACTIONS (2)
  - HEART RATE IRREGULAR [None]
  - DRUG INEFFECTIVE [None]
